FAERS Safety Report 12893689 (Version 2)
Quarter: 2016Q4

REPORT INFORMATION
  Report Type: Spontaneous
  Country: IN (occurrence: IN)
  Receive Date: 20161028
  Receipt Date: 20161128
  Transmission Date: 20170207
  Serious: Yes (Life-Threatening, Hospitalization, Other)
  Sender: FDA-Public Use
  Company Number: IN-GLAXOSMITHKLINE-IN2016GSK156206

PATIENT
  Age: 65 Year
  Sex: Male

DRUGS (5)
  1. CLOPIVAS AP [Concomitant]
     Route: 048
  2. ATORLIP [Concomitant]
     Route: 048
  3. NUROKIND PLUS [Concomitant]
     Route: 048
  4. CEFTUM [Suspect]
     Active Substance: CEFUROXIME
     Indication: COUGH
     Dosage: 250 MG, SINGLE
     Route: 048
  5. METOLAR XR [Concomitant]
     Active Substance: METOPROLOL SUCCINATE
     Route: 048

REACTIONS (4)
  - Loss of consciousness [Recovered/Resolved]
  - Product contamination [Unknown]
  - Pruritus generalised [Recovered/Resolved]
  - Anxiety [Recovered/Resolved]
